FAERS Safety Report 13904357 (Version 4)
Quarter: 2017Q3

REPORT INFORMATION
  Report Type: Spontaneous
  Country: AT (occurrence: AT)
  Receive Date: 20170825
  Receipt Date: 20170928
  Transmission Date: 20171127
  Serious: Yes (Hospitalization, Other)
  Sender: FDA-Public Use
  Company Number: AT-009507513-1708AUT010481

PATIENT
  Age: 61 Year
  Sex: Female

DRUGS (12)
  1. TRAMAL [Concomitant]
     Active Substance: TRAMADOL
     Indication: PAIN
     Dosage: 50 MG, 1-0-1
     Route: 048
     Dates: start: 20170730
  2. FORTECORTIN [Concomitant]
     Active Substance: DEXAMETHASONE
     Dosage: 2 MG, 1-0-0
     Route: 048
     Dates: start: 201608, end: 20170612
  3. NEURONTIN [Concomitant]
     Active Substance: GABAPENTIN
     Indication: PAIN
     Dosage: 300 MG, 1-1-1-0
     Route: 048
     Dates: start: 20170727
  4. MEXALEN [Concomitant]
     Active Substance: ACETAMINOPHEN
     Indication: PAIN
     Dosage: 500 MG, UP TO FOUR TIMES DAILY (AS NEEDED)
     Route: 048
     Dates: start: 20170727
  5. TAVANIC [Concomitant]
     Active Substance: LEVOFLOXACIN
     Indication: INFECTION PROPHYLAXIS
     Dosage: 500 MG, 1-0-0
     Route: 048
     Dates: start: 20170728, end: 20170805
  6. KEYTRUDA [Suspect]
     Active Substance: PEMBROLIZUMAB
     Indication: NON-SMALL CELL LUNG CANCER
     Dosage: UNK
     Dates: start: 20170706, end: 2017
  7. TAVANIC [Concomitant]
     Active Substance: LEVOFLOXACIN
     Indication: NEUTROPENIC INFECTION
  8. NOVALGIN (DIPYRONE) [Suspect]
     Active Substance: DIPYRONE
     Indication: PAIN
     Dosage: 500 MG, 1-1-1
     Route: 048
     Dates: start: 2017, end: 20170729
  9. FORTECORTIN [Concomitant]
     Active Substance: DEXAMETHASONE
     Dosage: 1 MG, 1-0-0
     Route: 048
     Dates: start: 20170612, end: 20170727
  10. PANTOPRAZOLE [Concomitant]
     Active Substance: PANTOPRAZOLE
     Indication: PROPHYLAXIS AGAINST GASTROINTESTINAL ULCER
     Dosage: 40 MG, 1-0-0
     Route: 048
     Dates: start: 2016
  11. ZOFRAN [Concomitant]
     Active Substance: ONDANSETRON HYDROCHLORIDE
     Indication: NAUSEA
     Dosage: 8 MG, 1-0-1
     Route: 048
     Dates: start: 20170614
  12. KEYTRUDA [Suspect]
     Active Substance: PEMBROLIZUMAB
     Indication: ADENOCARCINOMA
     Dosage: UNK
     Dates: start: 20170614

REACTIONS (2)
  - Leukopenia [Recovered/Resolved]
  - Neutropenia [Recovered/Resolved]

NARRATIVE: CASE EVENT DATE: 2017
